FAERS Safety Report 4806529-6 (Version None)
Quarter: 2005Q4

REPORT INFORMATION
  Report Type: 
  Country: None (occurrence: None)
  Receive Date: 20051021
  Receipt Date: 20050912
  Transmission Date: 20060501
  Serious: Yes (Other)
  Sender: FDA-Public Use
  Company Number: BE-ABBOTT-05P-056-0311275-00

PATIENT
  Age: 46 Year
  Sex: Male

DRUGS (1)
  1. FENOFIBRATE [Suspect]
     Indication: MIXED HYPERLIPIDAEMIA
     Route: 048

REACTIONS (1)
  - ANGIONEUROTIC OEDEMA [None]
